FAERS Safety Report 18603367 (Version 1)
Quarter: 2020Q4

REPORT INFORMATION
  Report Type: Report from Study
  Country: None (occurrence: DE)
  Receive Date: 20201210
  Receipt Date: 20201210
  Transmission Date: 20210114
  Serious: Yes (Hospitalization)
  Sender: FDA-Public Use
  Company Number: DE-ABBVIE-20K-062-3678921-00

PATIENT
  Sex: Male
  Weight: 118 kg

DRUGS (3)
  1. NOVAMINSULFON [Concomitant]
     Active Substance: METAMIZOLE
     Indication: PRODUCT USED FOR UNKNOWN INDICATION
     Dosage: 1-1-1 AS REQUIRED
  2. VOCADO [Concomitant]
     Active Substance: AMLODIPINE BESYLATE\OLMESARTAN MEDOXOMIL
     Indication: PRODUCT USED FOR UNKNOWN INDICATION
     Dosage: 20MG/5MG
  3. SKYRIZI [Suspect]
     Active Substance: RISANKIZUMAB-RZAA
     Indication: PSORIASIS
     Route: 058
     Dates: start: 20200604

REACTIONS (8)
  - Large intestine polyp [Unknown]
  - Rectal haemorrhage [Unknown]
  - Wound secretion [Unknown]
  - Epiploic appendagitis [Unknown]
  - Diverticulitis [Recovered/Resolved]
  - Diverticulum [Unknown]
  - Wound [Unknown]
  - Abdominal discomfort [Unknown]
